FAERS Safety Report 6419484-2 (Version None)
Quarter: 2009Q4

REPORT INFORMATION
  Report Type: 
  Country: None (occurrence: None)
  Receive Date: 20091027
  Receipt Date: 20091019
  Transmission Date: 20100525
  Serious: Yes (Other)
  Sender: FDA-Public Use
  Company Number: MSTR-NO-0910S-0199

PATIENT
  Age: 54 Year
  Sex: Male

DRUGS (1)
  1. METASTRON [Suspect]
     Indication: METASTATIC PAIN
     Dosage: SINGLE DOSE, I.V.
     Route: 042
     Dates: start: 20090707, end: 20090707

REACTIONS (2)
  - ANAEMIA [None]
  - CONCOMITANT DISEASE PROGRESSION [None]
